FAERS Safety Report 8487535 (Version 4)
Quarter: 2012Q4

REPORT INFORMATION
  Report Type: 
  Country: US (occurrence: US)
  Receive Date: 20120402
  Receipt Date: 20121012
  Transmission Date: 20130627
  Serious: Yes (Hospitalization, Disabling, Other)
  Sender: FDA-Public Use
  Company Number: US-009507513-1203USA03332

PATIENT

DRUGS (5)
  1. FOSAMAX [Suspect]
     Indication: OSTEOPOROSIS
     Dosage: 70 mg, qw
     Route: 048
     Dates: start: 2000, end: 20080302
  2. FOSAMAX [Suspect]
     Indication: OSTEOPENIA
  3. FOSAMAX [Suspect]
     Indication: OSTEOPOROSIS
     Route: 048
     Dates: start: 200201, end: 200802
  4. FOSAMAX [Suspect]
     Indication: OSTEOPENIA
  5. FOSAMAX [Suspect]
     Dosage: 10 mg, qd
     Route: 048

REACTIONS (90)
  - Bone disorder [Not Recovered/Not Resolved]
  - Osteoporosis [Not Recovered/Not Resolved]
  - Multiple fractures [Not Recovered/Not Resolved]
  - Bone density decreased [Not Recovered/Not Resolved]
  - Post procedural haemorrhage [Unknown]
  - Osteoarthritis [Unknown]
  - Pseudarthrosis [Not Recovered/Not Resolved]
  - Osteomyelitis [Recovered/Resolved]
  - Lung neoplasm [Unknown]
  - Blindness unilateral [Unknown]
  - Retinal artery occlusion [Unknown]
  - Coronary artery disease [Unknown]
  - Pulmonary embolism [Unknown]
  - Lobar pneumonia [Unknown]
  - Arthropathy [Unknown]
  - Cataract operation [Unknown]
  - Atrial fibrillation [Not Recovered/Not Resolved]
  - Open reduction of fracture [Unknown]
  - Infection [Unknown]
  - Blindness [Not Recovered/Not Resolved]
  - Deafness [Unknown]
  - Osteonecrosis [Unknown]
  - Femur fracture [Recovered/Resolved]
  - Femur fracture [Not Recovered/Not Resolved]
  - Hypothyroidism [Not Recovered/Not Resolved]
  - Adverse event [Unknown]
  - Benign lung neoplasm [Unknown]
  - Macular degeneration [Not Recovered/Not Resolved]
  - Blood glucose abnormal [Unknown]
  - Full blood count abnormal [Unknown]
  - Cataract [Unknown]
  - Urinary tract infection [Unknown]
  - Body temperature increased [Unknown]
  - Wrong device dispensed [Unknown]
  - Arteriosclerotic retinopathy [Unknown]
  - Bursitis [Not Recovered/Not Resolved]
  - Chronic obstructive pulmonary disease [Not Recovered/Not Resolved]
  - Bronchospasm [Unknown]
  - Essential hypertension [Not Recovered/Not Resolved]
  - Hyperlipidaemia [Unknown]
  - Asthma [Not Recovered/Not Resolved]
  - Rhinitis allergic [Unknown]
  - Carotid bruit [Unknown]
  - Tooth fracture [Unknown]
  - Rotator cuff syndrome [Recovering/Resolving]
  - Pulmonary hypertension [Unknown]
  - Iron deficiency anaemia [Unknown]
  - Cardiac failure congestive [Unknown]
  - Diastolic dysfunction [Unknown]
  - Emphysema [Not Recovered/Not Resolved]
  - Hypertrophic cardiomyopathy [Not Recovered/Not Resolved]
  - Hypokalaemia [Unknown]
  - Dehydration [Recovered/Resolved]
  - Colon adenoma [Unknown]
  - Diverticulum intestinal [Not Recovered/Not Resolved]
  - Haemorrhoids [Unknown]
  - Rotator cuff syndrome [Not Recovered/Not Resolved]
  - Rotator cuff syndrome [Not Recovered/Not Resolved]
  - Osteoarthritis [Not Recovered/Not Resolved]
  - Cardiac disorder [Unknown]
  - Actinic keratosis [Unknown]
  - Hypercholesterolaemia [Not Recovered/Not Resolved]
  - Acute sinusitis [Unknown]
  - Diverticulitis [Not Recovered/Not Resolved]
  - Chest pain [Unknown]
  - Pharyngitis [Unknown]
  - Viral infection [Unknown]
  - Stress fracture [Unknown]
  - Hyperglycaemia [Unknown]
  - Renal cyst [Unknown]
  - Aortic bruit [Unknown]
  - Sleep disorder due to general medical condition, insomnia type [Unknown]
  - Bone infarction [Unknown]
  - Foot fracture [Unknown]
  - Osteoarthritis [Unknown]
  - Limb asymmetry [Unknown]
  - Cystitis [Unknown]
  - Urinary incontinence [Unknown]
  - Urethral disorder [Unknown]
  - Vaginal prolapse [Unknown]
  - Fall [Unknown]
  - Contusion [Unknown]
  - Contusion [Unknown]
  - Back pain [Unknown]
  - Diarrhoea [Recovered/Resolved]
  - Abdominal pain lower [Unknown]
  - Vomiting [Unknown]
  - Pain in extremity [Unknown]
  - Pain in extremity [Unknown]
  - Gastrooesophageal reflux disease [Not Recovered/Not Resolved]
